FAERS Safety Report 14961006 (Version 1)
Quarter: 2018Q2

REPORT INFORMATION
  Report Type: Report from Study
  Country: KR (occurrence: KR)
  Receive Date: 20180531
  Receipt Date: 20180531
  Transmission Date: 20180711
  Serious: Yes (Death, Other)
  Sender: FDA-Public Use
  Company Number: KR-BAXTER-2018BAX015759

PATIENT
  Age: 79 Month
  Sex: Male

DRUGS (24)
  1. HOLOXAN 1000MG INJ (IFOSFAMIDE) [Suspect]
     Active Substance: IFOSFAMIDE
     Indication: EPENDYMOMA MALIGNANT
     Dosage: B: CEIV: ON DAYS 0-4
     Route: 065
  2. CARBOPLATIN. [Suspect]
     Active Substance: CARBOPLATIN
     Dosage: B: CEIV, ON DAYS 0 AND 1
     Route: 065
  3. ETOPOSIDE. [Suspect]
     Active Substance: ETOPOSIDE
     Indication: EPENDYMOMA MALIGNANT
     Dosage: A: CECV, ON DAY 0-2
     Route: 065
  4. ETOPOSIDE. [Suspect]
     Active Substance: ETOPOSIDE
     Dosage: A: CECV, ON DAY 0-2
     Route: 065
  5. CISPLATIN. [Suspect]
     Active Substance: CISPLATIN
     Indication: EPENDYMOMA MALIGNANT
     Dosage: A: CECV, ON DAY 0
     Route: 065
  6. CARBOPLATIN. [Suspect]
     Active Substance: CARBOPLATIN
     Indication: EPENDYMOMA MALIGNANT
     Dosage: B: CEIV, ON DAYS 0 AND 1
     Route: 065
  7. ETOPOSIDE. [Suspect]
     Active Substance: ETOPOSIDE
     Dosage: B: CEIV, ON DAYS 0-4
     Route: 065
  8. VINCRISTINE [Suspect]
     Active Substance: VINCRISTINE
     Dosage: A: CECV, ON DAYS 0 AND 7
     Route: 065
  9. VINCRISTINE [Suspect]
     Active Substance: VINCRISTINE
     Dosage: A: CECV, ON DAYS 0 AND 7
     Route: 065
  10. HOLOXAN 1000MG INJ (IFOSFAMIDE) [Suspect]
     Active Substance: IFOSFAMIDE
     Dosage: B: CEIV: ON DAYS 0-4
     Route: 065
  11. ETOPOSIDE. [Suspect]
     Active Substance: ETOPOSIDE
     Dosage: B: CEIV, ON DAYS 0-4
     Route: 065
  12. VINCRISTINE [Suspect]
     Active Substance: VINCRISTINE
     Indication: EPENDYMOMA MALIGNANT
     Dosage: A: CECV, ON DAYS 0 AND 7
     Route: 065
  13. VINCRISTINE [Suspect]
     Active Substance: VINCRISTINE
     Dosage: B: CEIV, ON DAYS 0 AND 7
     Route: 065
  14. ENDOXAN 500MG INJ. (CYCLOPHOSPHAMIDE) [Suspect]
     Active Substance: CYCLOPHOSPHAMIDE
     Dosage: A: CECV, ON DAY 1 AND 2
     Route: 065
  15. CISPLATIN. [Suspect]
     Active Substance: CISPLATIN
     Dosage: A: CECV, ON DAY 0
     Route: 065
  16. VINCRISTINE [Suspect]
     Active Substance: VINCRISTINE
     Dosage: B: CEIV, ON DAYS 0 AND 7
     Route: 065
  17. HOLOXAN 1000MG INJ (IFOSFAMIDE) [Suspect]
     Active Substance: IFOSFAMIDE
     Dosage: B: CEIV: ON DAYS 0-4
     Route: 065
  18. ENDOXAN 500MG INJ. (CYCLOPHOSPHAMIDE) [Suspect]
     Active Substance: CYCLOPHOSPHAMIDE
     Dosage: A: CECV, ON DAY 1 AND 2
     Route: 065
  19. ETOPOSIDE. [Suspect]
     Active Substance: ETOPOSIDE
     Dosage: B: CEIV, ON DAYS 0-4
     Route: 065
  20. CARBOPLATIN. [Suspect]
     Active Substance: CARBOPLATIN
     Dosage: B: CEIV, ON DAYS 0 AND 1
     Route: 065
  21. CISPLATIN. [Suspect]
     Active Substance: CISPLATIN
     Dosage: A: CECV, ON DAY 0
     Route: 065
  22. VINCRISTINE [Suspect]
     Active Substance: VINCRISTINE
     Dosage: B: CEIV, ON DAYS 0 AND 7
     Route: 065
  23. ENDOXAN 500MG INJ. (CYCLOPHOSPHAMIDE) [Suspect]
     Active Substance: CYCLOPHOSPHAMIDE
     Indication: EPENDYMOMA MALIGNANT
     Dosage: A: CECV, ON DAY 1 AND 2
     Route: 065
  24. ETOPOSIDE. [Suspect]
     Active Substance: ETOPOSIDE
     Dosage: A: CECV, ON DAY 0-2
     Route: 065

REACTIONS (2)
  - Febrile neutropenia [Unknown]
  - Venoocclusive liver disease [Fatal]
